FAERS Safety Report 4795064-X (Version None)
Quarter: 2005Q4

REPORT INFORMATION
  Report Type: 
  Country: None (occurrence: None)
  Receive Date: 20051012
  Receipt Date: 20050930
  Transmission Date: 20060501
  Serious: Yes (Other)
  Sender: FDA-Public Use
  Company Number: DE-NOVOPROD-247339

PATIENT
  Sex: Female

DRUGS (12)
  1. LEVEMIR [Suspect]
     Indication: INSULIN-REQUIRING TYPE II DIABETES MELLITUS
     Dosage: 18 IU, UNK
  2. MANINIL ^BERLIN-CHEMIE^ [Concomitant]
     Dosage: 5 MG, TID
     Route: 048
  3. METFORMIN [Concomitant]
     Dosage: 850 MG, TID
     Route: 048
  4. FELODIPINE [Concomitant]
     Dosage: UNK, QD
  5. METOPROLOL SUCCINATE [Concomitant]
     Dosage: 95 MG, QD
     Route: 048
  6. ASS ^CT-ARZNEIMITTEL^ [Concomitant]
     Dosage: 100 MG, QD
     Route: 048
  7. RAMIPRIL [Concomitant]
     Dosage: UNK, QD
     Route: 048
  8. L-THYROXIN - SLOW RELEASE [Concomitant]
     Dosage: 75 UG, QD
     Route: 048
  9. SIMVASTATIN [Concomitant]
     Dosage: UNK, QD
     Route: 048
  10. MIGEREST [Concomitant]
     Dosage: UNK, QD
     Route: 048
  11. AMPHO-MORONAL [Concomitant]
     Dosage: UNK, QID
     Route: 048
  12. FAUSTAN [Concomitant]
     Dosage: UNK, UNK
     Route: 048

REACTIONS (1)
  - PERIODONTITIS [None]
